FAERS Safety Report 9445046 (Version 1)
Quarter: 2013Q3

REPORT INFORMATION
  Report Type: Spontaneous
  Country: US (occurrence: US)
  Receive Date: 20130807
  Receipt Date: 20130807
  Transmission Date: 20140515
  Serious: Yes (Other)
  Sender: FDA-Public Use
  Company Number: US-TEVA-423181USA

PATIENT
  Sex: Male

DRUGS (1)
  1. CARVEDILOL [Suspect]
     Dosage: 25 MILLIGRAM DAILY; 1/2 TABLET

REACTIONS (4)
  - Laryngeal stenosis [Unknown]
  - Dizziness [Unknown]
  - Malaise [Unknown]
  - Eye pruritus [Unknown]
